FAERS Safety Report 10504587 (Version 2)
Quarter: 2014Q4

REPORT INFORMATION
  Report Type: Spontaneous
  Country: US (occurrence: US)
  Receive Date: 20141008
  Receipt Date: 20141209
  Transmission Date: 20150528
  Serious: No
  Sender: FDA-Public Use
  Company Number: US-009507513-1410USA000745

PATIENT
  Age: 20 Year
  Sex: Female
  Weight: 114.74 kg

DRUGS (1)
  1. IMPLANON [Suspect]
     Active Substance: ETONOGESTREL
     Dosage: SINGLE ROD, IN THE LEFT ARM
     Route: 059
     Dates: start: 20121219, end: 20141017

REACTIONS (1)
  - Medical device complication [Recovered/Resolved]

NARRATIVE: CASE EVENT DATE: 20140923
